FAERS Safety Report 10199358 (Version 1)
Quarter: 2014Q2

REPORT INFORMATION
  Report Type: Spontaneous
  Country: GR (occurrence: GR)
  Receive Date: 20140527
  Receipt Date: 20140527
  Transmission Date: 20141212
  Serious: Yes (Disabling)
  Sender: FDA-Public Use
  Company Number: GR-ELI_LILLY_AND_COMPANY-GR201405005135

PATIENT
  Age: 70 Year
  Sex: Female

DRUGS (8)
  1. ZYPREXA [Suspect]
     Indication: DEPRESSION
     Dosage: 10 MG, QD
     Route: 048
     Dates: start: 20140418, end: 20140423
  2. ZYPREXA [Suspect]
     Indication: OBSESSIVE THOUGHTS
     Dosage: 5 MG, QD
     Route: 048
     Dates: start: 20140424, end: 20140512
  3. ZOLOFT [Concomitant]
     Dosage: UNK
     Route: 048
  4. XANAX [Concomitant]
     Dosage: UNK
     Route: 048
  5. ALOPERIDIN [Concomitant]
     Dosage: UNK
     Route: 048
  6. SALOSPIR [Concomitant]
     Dosage: UNK
     Route: 048
  7. ANAFRANIL [Concomitant]
     Dosage: UNK
     Route: 048
  8. CONTROLOC                          /01263201/ [Concomitant]
     Indication: VASCULAR MALFORMATION
     Dosage: UNK
     Route: 048
     Dates: start: 201404

REACTIONS (6)
  - Musculoskeletal stiffness [Not Recovered/Not Resolved]
  - Delirium [Not Recovered/Not Resolved]
  - Hyperhidrosis [Not Recovered/Not Resolved]
  - Amnesia [Not Recovered/Not Resolved]
  - Dizziness [Not Recovered/Not Resolved]
  - Off label use [Unknown]
